APPROVED DRUG PRODUCT: RISPERIDONE
Active Ingredient: RISPERIDONE
Strength: 0.5MG
Dosage Form/Route: TABLET, ORALLY DISINTEGRATING;ORAL
Application: A090839 | Product #001 | TE Code: AB
Applicant: JUBILANT GENERICS LTD
Approved: Nov 4, 2011 | RLD: No | RS: No | Type: RX